FAERS Safety Report 7520323-7 (Version None)
Quarter: 2011Q2

REPORT INFORMATION
  Report Type: 
  Country: None (occurrence: None)
  Receive Date: 20110602
  Receipt Date: 20110531
  Transmission Date: 20111010
  Serious: Yes (Death, Hospitalization, Other)
  Sender: FDA-Public Use
  Company Number: US-AMGEN-QUU410863

PATIENT
  Age: 81 Year
  Sex: Male

DRUGS (10)
  1. CORTICOSTEROID NOS [Concomitant]
  2. ALLOPURINOL [Concomitant]
     Dosage: UNK UNK, UNK
     Route: 048
  3. TAMSULOSIN HCL [Concomitant]
     Dosage: UNK UNK, UNK
     Route: 048
  4. PREDNISONE [Concomitant]
     Dosage: 20 MG, QD
     Route: 048
     Dates: start: 20091221
  5. PANTOPRAZOLE SODIUM [Concomitant]
     Dosage: 40 MG, QD
     Route: 048
  6. NPLATE [Suspect]
     Indication: IDIOPATHIC THROMBOCYTOPENIC PURPURA
     Dosage: 322 A?G, QWK
     Dates: start: 20091109, end: 20100510
  7. POTASSIUM CHLORIDE [Concomitant]
     Dosage: 20 MEQ, QD
     Route: 048
  8. IMMUNOGLOBULINS [Concomitant]
  9. FUROSEMIDE [Concomitant]
     Dosage: 20 MG, QD
     Route: 048
  10. PROTONIX [Concomitant]

REACTIONS (12)
  - HAEMATOLOGICAL MALIGNANCY [None]
  - ASTHENIA [None]
  - DYSURIA [None]
  - PROCEDURAL PAIN [None]
  - NORMOCHROMIC NORMOCYTIC ANAEMIA [None]
  - MYELODYSPLASTIC SYNDROME [None]
  - THERAPEUTIC RESPONSE DECREASED [None]
  - CONTUSION [None]
  - SEPSIS [None]
  - DIZZINESS [None]
  - ACUTE MYELOID LEUKAEMIA [None]
  - FATIGUE [None]
